FAERS Safety Report 5659566-6 (Version None)
Quarter: 2008Q1

REPORT INFORMATION
  Report Type: 
  Country: None (occurrence: None)
  Receive Date: 20080311
  Receipt Date: 20080228
  Transmission Date: 20080703
  Serious: Yes (Hospitalization, Other)
  Sender: FDA-Public Use
  Company Number: SE-AVENTIS-200810977EU

PATIENT
  Age: 73 Year
  Sex: Male

DRUGS (7)
  1. RILUTEK [Suspect]
     Indication: AMYOTROPHIC LATERAL SCLEROSIS
     Route: 048
     Dates: start: 20080105, end: 20080201
  2. WARAN [Suspect]
     Dosage: DOSE: UNK
     Route: 048
     Dates: start: 20060101
  3. METOPROLOL TARTRATE [Concomitant]
     Dosage: DOSE: UNK
  4. MADOPARK QUICK [Concomitant]
     Dosage: DOSE: UNK
  5. ZOLPIDEM TARTRATE [Concomitant]
     Dosage: DOSE: UNK
  6. SPARKAL MITE [Concomitant]
     Dosage: DOSE: UNK
  7. TIPAROL [Concomitant]
     Dosage: DOSE: UNK

REACTIONS (3)
  - DRUG INTERACTION [None]
  - HAEMATURIA [None]
  - INTERNATIONAL NORMALISED RATIO INCREASED [None]
